FAERS Safety Report 4453825-0 (Version None)
Quarter: 2004Q3

REPORT INFORMATION
  Report Type: 
  Country: None (occurrence: None)
  Receive Date: 20040920
  Receipt Date: 20040907
  Transmission Date: 20050211
  Serious: Yes (Hospitalization)
  Sender: FDA-Public Use
  Company Number: IT-ROCHE-379733

PATIENT
  Age: 60 Year
  Sex: Male
  Weight: 78 kg

DRUGS (4)
  1. PEG-INTERFERON ALFA 2A (RO 25-8310) [Suspect]
     Dosage: FORMULATION: PFS.
     Route: 058
     Dates: start: 20020420, end: 20020427
  2. PEG-INTERFERON ALFA 2A (RO 25-8310) [Suspect]
     Route: 058
     Dates: start: 20020427, end: 20020504
  3. RIBAVIRIN [Suspect]
     Route: 048
     Dates: start: 20020420, end: 20020427
  4. RIBAVIRIN [Suspect]
     Route: 048
     Dates: start: 20020427, end: 20020504

REACTIONS (1)
  - GASTROENTERITIS [None]
